FAERS Safety Report 15102651 (Version 1)
Quarter: 2018Q2

REPORT INFORMATION
  Report Type: Spontaneous
  Country: US (occurrence: US)
  Receive Date: 20180611
  Receipt Date: 20180611
  Transmission Date: 20180711
  Serious: Yes (Life-Threatening)
  Sender: FDA-Public Use
  Company Number: None

PATIENT
  Age: 67 Year
  Sex: Female

DRUGS (10)
  1. NINLARO [Suspect]
     Active Substance: IXAZOMIB CITRATE
     Indication: PLASMA CELL MYELOMA
     Route: 048
  2. CALCIUM [Concomitant]
     Active Substance: CALCIUM
  3. LEVOFLOXACIN. [Concomitant]
     Active Substance: LEVOFLOXACIN
  4. ACYCLOVIR. [Concomitant]
     Active Substance: ACYCLOVIR
  5. ASPIRIN. [Concomitant]
     Active Substance: ASPIRIN
  6. MULTIVITAMIN [Concomitant]
     Active Substance: VITAMINS
  7. VITAMIN D3 [Concomitant]
     Active Substance: CHOLECALCIFEROL
  8. MELOXICAM. [Concomitant]
     Active Substance: MELOXICAM
  9. DEXAMTHASONE [Concomitant]
  10. OMEPRAZOLE. [Concomitant]
     Active Substance: OMEPRAZOLE

REACTIONS (3)
  - Rash [None]
  - Constipation [None]
  - Bone pain [None]

NARRATIVE: CASE EVENT DATE: 20180608
